FAERS Safety Report 7278552-6 (Version None)
Quarter: 2011Q1

REPORT INFORMATION
  Report Type: 
  Country: None (occurrence: None)
  Receive Date: 20110207
  Receipt Date: 20110128
  Transmission Date: 20110831
  Serious: Yes (Death, Hospitalization, Other)
  Sender: FDA-Public Use
  Company Number: PHHY2011FR07278

PATIENT
  Age: 45 Year
  Sex: Male

DRUGS (6)
  1. PYRAZINAMIDE [Suspect]
     Indication: TUBERCULOSIS
  2. CIPROFLOXACIN [Suspect]
     Indication: TUBERCULOSIS
  3. ETHAMBUTOL HYDROCHLORIDE [Suspect]
     Indication: TUBERCULOSIS
  4. RIFAMPICIN [Suspect]
     Indication: TUBERCULOSIS
  5. AMIKACIN [Suspect]
     Indication: TUBERCULOSIS
     Dosage: UNK
  6. ISONIAZID [Suspect]
     Indication: TUBERCULOSIS
     Dosage: UNK

REACTIONS (5)
  - SEPSIS [None]
  - MULTI-ORGAN FAILURE [None]
  - NEPHROPATHY TOXIC [None]
  - ACUTE HEPATIC FAILURE [None]
  - JAUNDICE [None]
